FAERS Safety Report 9227335 (Version 2)
Quarter: 2013Q2

REPORT INFORMATION
  Report Type: Spontaneous
  Country: FR (occurrence: FR)
  Receive Date: 20130412
  Receipt Date: 20130425
  Transmission Date: 20140414
  Serious: Yes (Death)
  Sender: FDA-Public Use
  Company Number: FR-JNJFOC-20130405354

PATIENT
  Sex: 0

DRUGS (6)
  1. DOXORUBICIN [Suspect]
     Indication: MANTLE CELL LYMPHOMA
     Dosage: DAY 1
     Route: 042
  2. DOXORUBICIN [Suspect]
     Indication: MANTLE CELL LYMPHOMA
     Dosage: DAY 1
     Route: 065
  3. VINCRISTINE [Suspect]
     Indication: MANTLE CELL LYMPHOMA
     Dosage: DAY 1
     Route: 065
  4. PREDNISONE [Suspect]
     Indication: MANTLE CELL LYMPHOMA
     Dosage: DAYS 1-5
     Route: 065
  5. RITUXIMAB [Suspect]
     Indication: MANTLE CELL LYMPHOMA
     Route: 042
  6. CYCLOPHOSPHAMIDE [Suspect]
     Indication: MANTLE CELL LYMPHOMA
     Dosage: DAY 1
     Route: 065

REACTIONS (1)
  - Death [Fatal]
